FAERS Safety Report 8600642-3 (Version None)
Quarter: 2012Q3

REPORT INFORMATION
  Report Type: 
  Country: None (occurrence: None)
  Receive Date: 20120817
  Receipt Date: 20120810
  Transmission Date: 20120928
  Serious: Yes (Hospitalization)
  Sender: FDA-Public Use
  Company Number: FR-UCBSA-063471

PATIENT
  Sex: Male

DRUGS (3)
  1. KEPPRA [Suspect]
     Dosage: 500 MG
     Route: 048
     Dates: start: 20120601, end: 20120101
  2. KEPPRA [Suspect]
     Dosage: DOSE INCREASED
     Dates: start: 20120101
  3. NEURONTIN [Concomitant]
     Dosage: FOR SEVERAL YEARS

REACTIONS (20)
  - FATIGUE [None]
  - DRUG INEFFECTIVE [None]
  - HOSTILITY [None]
  - ANGER [None]
  - SOMNOLENCE [None]
  - DIZZINESS [None]
  - BALANCE DISORDER [None]
  - ATTENTION DEFICIT/HYPERACTIVITY DISORDER [None]
  - MOOD ALTERED [None]
  - VOMITING [None]
  - MEMORY IMPAIRMENT [None]
  - AGGRESSION [None]
  - DEPRESSION [None]
  - NERVOUSNESS [None]
  - LIVER FUNCTION TEST ABNORMAL [None]
  - MALAISE [None]
  - WEIGHT DECREASED [None]
  - ASTHENIA [None]
  - IRRITABILITY [None]
  - VERTIGO [None]
